FAERS Safety Report 20219565 (Version 3)
Quarter: 2022Q4

REPORT INFORMATION
  Report Type: Spontaneous
  Country: US (occurrence: US)
  Receive Date: 20211222
  Receipt Date: 20221025
  Transmission Date: 20230113
  Serious: Yes (Hospitalization)
  Sender: FDA-Public Use
  Company Number: US-PFIZER INC-202101368666

PATIENT
  Age: 63 Year
  Sex: Male

DRUGS (2)
  1. VFEND [Suspect]
     Active Substance: VORICONAZOLE
     Indication: Fungal infection
     Dosage: 50 MG AND 200 MG TABLETS, TWICE DAILY
     Route: 048
  2. VFEND [Suspect]
     Active Substance: VORICONAZOLE
     Dosage: 500 MG AT 9 AM AND 250 MG AT 9 PM

REACTIONS (2)
  - Lung transplant [Unknown]
  - Prescribed overdose [Unknown]
